FAERS Safety Report 9697846 (Version 1)
Quarter: 2013Q4

REPORT INFORMATION
  Report Type: Spontaneous
  Country: TR (occurrence: None)
  Receive Date: 20131118
  Receipt Date: 20131118
  Transmission Date: 20140711
  Serious: Yes (Life-Threatening, Hospitalization)
  Sender: FDA-Public Use
  Company Number: DAV-AE-FUR-13-08

PATIENT
  Age: 34 Year
  Sex: Female

DRUGS (2)
  1. FUROSEMIDE [Suspect]
     Route: 042
  2. WARFARIN [Concomitant]

REACTIONS (4)
  - Hypokalaemia [None]
  - Torsade de pointes [None]
  - Ventricular fibrillation [None]
  - Long QT syndrome congenital [None]
